FAERS Safety Report 6804919-3 (Version None)
Quarter: 2010Q2

REPORT INFORMATION
  Report Type: 
  Country: None (occurrence: None)
  Receive Date: 20100628
  Receipt Date: 20070627
  Transmission Date: 20101027
  Serious: No
  Sender: FDA-Public Use
  Company Number: US-PFIZER INC-2007054391

PATIENT
  Sex: Male

DRUGS (6)
  1. NIFEDIPINE [Suspect]
     Indication: HYPERTENSION
  2. CORGARD [Suspect]
     Indication: EXTRASYSTOLES
     Dates: start: 20070625
  3. CORGARD [Suspect]
     Indication: HYPERTENSION
  4. LISINOPRIL [Suspect]
     Indication: HYPERTENSION
     Dosage: QD
  5. TERAZOSIN HCL [Suspect]
     Indication: HYPERTENSION
     Dosage: QD
  6. ACETYLSALICYLIC ACID [Concomitant]
     Dosage: QD

REACTIONS (1)
  - BLOOD PRESSURE INADEQUATELY CONTROLLED [None]
